FAERS Safety Report 16191920 (Version 1)
Quarter: 2019Q2

REPORT INFORMATION
  Report Type: Report from Study
  Country: US (occurrence: AU)
  Receive Date: 20190412
  Receipt Date: 20190412
  Transmission Date: 20190711
  Serious: Yes (Life-Threatening)
  Sender: FDA-Public Use
  Company Number: AU-BRECKENRIDGE PHARMACEUTICAL, INC.-2065748

PATIENT
  Sex: Male

DRUGS (1)
  1. IMATINIB. [Suspect]
     Active Substance: IMATINIB MESYLATE
     Indication: CHRONIC MYELOID LEUKAEMIA

REACTIONS (1)
  - Bone marrow reticulin fibrosis [Recovering/Resolving]
